FAERS Safety Report 9358887 (Version 1)
Quarter: 2013Q2

REPORT INFORMATION
  Report Type: Spontaneous
  Country: DE (occurrence: DE)
  Receive Date: 20130620
  Receipt Date: 20130620
  Transmission Date: 20140414
  Serious: Yes (Hospitalization)
  Sender: FDA-Public Use
  Company Number: DE-EISAI INC-E2007-01208-SPO-DE

PATIENT
  Age: 13 Year
  Sex: Female
  Weight: 101 kg

DRUGS (4)
  1. FYCOMPA (PERAMPANEL) [Suspect]
     Indication: PRODUCT USED FOR UNKNOWN INDICATION
     Route: 048
     Dates: start: 20130430, end: 201306
  2. FYCOMPA (PERAMPANEL) [Suspect]
     Route: 048
     Dates: start: 201306
  3. L-THYROXIN [Concomitant]
     Dosage: 37.5 UG DAILY
     Route: 048
  4. LACOSAMIDE [Concomitant]
     Dosage: 400 MG DAILY
     Route: 048

REACTIONS (2)
  - Hypertension [Not Recovered/Not Resolved]
  - Oedema peripheral [Not Recovered/Not Resolved]
